FAERS Safety Report 8777170 (Version 3)
Quarter: 2013Q3

REPORT INFORMATION
  Report Type: Spontaneous
  Country: US (occurrence: US)
  Receive Date: 20120911
  Receipt Date: 20130716
  Transmission Date: 20140515
  Serious: No
  Sender: FDA-Public Use
  Company Number: US-009507513-1208USA007150

PATIENT
  Sex: Female

DRUGS (5)
  1. PEGINTRON [Suspect]
     Indication: HEPATITIS C
     Dosage: REDIPEN
     Dates: start: 20120803
  2. REBETOL [Suspect]
     Indication: HEPATITIS C
     Dosage: UNK
     Dates: start: 20110101, end: 20111101
  3. REBETOL [Suspect]
     Dosage: UNK
     Dates: start: 20120803
  4. PEGASYS [Suspect]
     Indication: HEPATITIS C
     Dosage: UNK
     Dates: start: 20110101, end: 20111101
  5. TELAPREVIR [Suspect]
     Indication: HEPATITIS C
     Dosage: UNK
     Dates: start: 20120803, end: 20121030

REACTIONS (6)
  - Bed rest [Unknown]
  - Drug ineffective [Unknown]
  - Fatigue [Unknown]
  - Weight decreased [Unknown]
  - Decreased appetite [Recovered/Resolved]
  - Alopecia [Recovering/Resolving]
